FAERS Safety Report 17721373 (Version 7)
Quarter: 2021Q2

REPORT INFORMATION
  Report Type: Other
  Country: DE (occurrence: DE)
  Receive Date: 20200429
  Receipt Date: 20210610
  Transmission Date: 20210716
  Serious: Yes (Life-Threatening, Hospitalization)
  Sender: FDA-Public Use
  Company Number: DE-CELLTRION INC.-2020DE021856

PATIENT

DRUGS (12)
  1. PERTUZUMAB. [Suspect]
     Active Substance: PERTUZUMAB
     Indication: BREAST CANCER
     Dosage: 3/WEEK (LAST DOSE RECEIVED BEFORE SAE ON 25/MAR/2020 (TOTAL DOSE 420 MG), 22/APR/2020 (DAY 1 AT THE
     Route: 042
     Dates: start: 20200122
  2. ATEZOLIZUMAB. [Suspect]
     Active Substance: ATEZOLIZUMAB
     Indication: BREAST CANCER
     Dosage: UNK
  3. IRBESARTAN. [Concomitant]
     Active Substance: IRBESARTAN
     Indication: HYPERTENSION
     Dosage: UNK
     Dates: start: 19850101, end: 20200417
  4. AMLODIPINE [Concomitant]
     Active Substance: AMLODIPINE BESYLATE
     Indication: HYPERTENSION
     Dosage: UNK
     Dates: start: 19850101, end: 20200417
  5. CALCIUM [Concomitant]
     Active Substance: CALCIUM
     Indication: HYPOCALCAEMIA
     Dosage: UNK
     Dates: start: 20200416
  6. METOHEXAL [Concomitant]
     Active Substance: METOPROLOL
     Dosage: UNK
     Dates: start: 20200505
  7. TORASEMID [Concomitant]
     Active Substance: TORSEMIDE
     Indication: HYPERTENSION
     Dosage: UNK
     Dates: start: 19850101, end: 20200417
  8. TRASTUZUMAB (UNKNOWN) [Suspect]
     Active Substance: TRASTUZUMAB
     Indication: BREAST CANCER
     Dosage: 3/WEEK (LAT DOSE RECEIVED BEFORE SAE ON 25/MAR/2020 (702 MG), 22/APR/2020 DAY 1 AT THE DOSE OF 8 MG/
     Route: 042
     Dates: start: 20200122
  9. ATEZOLIZUMAB. [Suspect]
     Active Substance: ATEZOLIZUMAB
     Dosage: LAST DOSE RECEIVED BEFOR SAE ON 25/MAR/2020, 22?APR?2020
     Route: 041
     Dates: start: 20200122
  10. CARBOPLATIN. [Suspect]
     Active Substance: CARBOPLATIN
     Indication: BREAST CANCER
     Dosage: LAST DOSE RECEIVED BEFORE SAE ON 01/APR/2020 (TOTAL DOSE 294,72 MG), 29/APR/2020 DAY 1 AND DAY 8 EVE
     Route: 065
     Dates: start: 20200325
  11. PACLITAXEL. [Suspect]
     Active Substance: PACLITAXEL
     Indication: BREAST CANCER
     Dosage: 22/MAR/2020, 25/MAR/2020 LAST DOSE RECEIVED BEFORE SAE ON 01/APR/2020 (193 MG) LAST DOSE RECEIVED BE
     Route: 042
     Dates: start: 20200122
  12. METOHEXAL [Concomitant]
     Active Substance: METOPROLOL
     Indication: HYPERTENSION
     Dosage: UNK
     Dates: start: 19850101, end: 20200418

REACTIONS (5)
  - Hypotension [Recovered/Resolved]
  - Off label use [Unknown]
  - General physical health deterioration [Not Recovered/Not Resolved]
  - Gastrointestinal disorder [Recovered/Resolved]
  - Anaemia [Recovered/Resolved]

NARRATIVE: CASE EVENT DATE: 20200409
